FAERS Safety Report 23892357 (Version 1)
Quarter: 2024Q2

REPORT INFORMATION
  Report Type: Spontaneous
  Country: US (occurrence: None)
  Receive Date: 20240524
  Receipt Date: 20240524
  Transmission Date: 20240716
  Serious: No
  Sender: FDA-Public Use
  Company Number: US-ROCHE-3427948

PATIENT
  Sex: Female

DRUGS (1)
  1. OCREVUS [Suspect]
     Active Substance: OCRELIZUMAB
     Indication: Multiple sclerosis
     Route: 058
     Dates: start: 202212

REACTIONS (4)
  - Asthenia [Unknown]
  - Menstruation irregular [Unknown]
  - Haemorrhage [Unknown]
  - Alopecia [Unknown]
